FAERS Safety Report 8575100-5 (Version None)
Quarter: 2012Q2

REPORT INFORMATION
  Report Type: 
  Country: None (occurrence: None)
  Receive Date: 20120423
  Receipt Date: 20090731
  Transmission Date: 20120825
  Serious: Yes (Other)
  Sender: FDA-Public Use
  Company Number: PHEH2009US07656

PATIENT
  Age: 55 Year
  Sex: Male

DRUGS (5)
  1. CELLCEPT [Concomitant]
  2. EXJADE [Suspect]
     Indication: SERUM FERRITIN INCREASED
     Dosage: 1750 MG DAILY, ORAL
     Route: 048
     Dates: start: 20051201, end: 20060201
  3. PREDNISONE TAB [Concomitant]
  4. VALTREX [Concomitant]
  5. BACTRIM [Concomitant]

REACTIONS (3)
  - LIVER FUNCTION TEST ABNORMAL [None]
  - DIZZINESS [None]
  - BLOOD BILIRUBIN INCREASED [None]
